FAERS Safety Report 13237004 (Version 1)
Quarter: 2017Q1

REPORT INFORMATION
  Report Type: Spontaneous
  Country: FR (occurrence: FR)
  Receive Date: 20170215
  Receipt Date: 20170215
  Transmission Date: 20170428
  Serious: Yes (Hospitalization)
  Sender: FDA-Public Use
  Company Number: ALCN2016FR009818

PATIENT
  Age: 77 Year
  Sex: Female

DRUGS (2)
  1. VEXOL [Suspect]
     Active Substance: RIMEXOLONE
     Dosage: UNK
     Route: 047
     Dates: start: 20161219, end: 20161228
  2. VEXOL [Suspect]
     Active Substance: RIMEXOLONE
     Indication: POST PROCEDURAL INFLAMMATION
     Dosage: 1 GTT, TID
     Route: 047
     Dates: start: 20161219, end: 20161228

REACTIONS (2)
  - Vision blurred [Unknown]
  - Pneumonia [Recovered/Resolved]

NARRATIVE: CASE EVENT DATE: 20161223
